FAERS Safety Report 8783637 (Version 1)
Quarter: 2012Q4

REPORT INFORMATION
  Report Type: Report from Study
  Country: US (occurrence: US)
  Receive Date: 20120913
  Receipt Date: 20120913
  Transmission Date: 20130627
  Serious: No
  Sender: FDA-Public Use
  Company Number: US-VERTEX PHARMACEUTICAL INC.-AE-2012-008521

PATIENT
  Sex: Female

DRUGS (14)
  1. INCIVEK [Suspect]
     Indication: HEPATITIS C
     Route: 048
  2. PEGASYS [Concomitant]
     Indication: HEPATITIS C
  3. RIBAPAK [Concomitant]
     Indication: HEPATITIS C
  4. FENTANYL DIS [Concomitant]
  5. ONDANSETRON [Concomitant]
  6. XIFAXAN [Concomitant]
  7. OMEPRAZOLE [Concomitant]
  8. DICYCLOMINE [Concomitant]
  9. LYRICA [Concomitant]
  10. TRAZODONE [Concomitant]
  11. CYCLOBENZAPAR [Concomitant]
  12. XANAX [Concomitant]
  13. ZYRTEC-D [Concomitant]
  14. LACTULOSE [Concomitant]

REACTIONS (2)
  - Anxiety [Recovered/Resolved]
  - Abdominal discomfort [Recovered/Resolved]
